FAERS Safety Report 10448267 (Version 1)
Quarter: 2014Q3

REPORT INFORMATION
  Report Type: Spontaneous
  Country: DE (occurrence: JP)
  Receive Date: 20140911
  Receipt Date: 20140911
  Transmission Date: 20150326
  Serious: Yes (Other)
  Sender: FDA-Public Use
  Company Number: JP-FRI-1000070558

PATIENT
  Age: 8 Decade
  Sex: Male

DRUGS (1)
  1. MEMANTINE [Suspect]
     Active Substance: MEMANTINE
     Dosage: 20 MG

REACTIONS (1)
  - Cerebral infarction [Recovered/Resolved]
